FAERS Safety Report 23165767 (Version 1)
Quarter: 2023Q4

REPORT INFORMATION
  Report Type: Spontaneous
  Country: FI (occurrence: FI)
  Receive Date: 20231109
  Receipt Date: 20231109
  Transmission Date: 20240110
  Serious: Yes (Life-Threatening)
  Sender: FDA-Public Use
  Company Number: None

PATIENT
  Age: 52 Year
  Sex: Male

DRUGS (6)
  1. EMTRICITABINE\TENOFOVIR DISOPROXIL [Suspect]
     Active Substance: EMTRICITABINE\TENOFOVIR DISOPROXIL
     Indication: HIV infection
     Dosage: 1 DOSAGE FORM, QD
     Route: 048
     Dates: start: 20220803, end: 20231018
  2. B12 VITAMIINI RATIOPHARM [Concomitant]
     Indication: Vitamin B12 deficiency
     Dosage: 1 MILLIGRAM, QD (DAILY)
     Route: 048
     Dates: start: 20221102
  3. Glucosamin Orion [Concomitant]
     Indication: Osteoarthritis
     Dosage: 1200 MILLIGRAM, QD
     Route: 065
     Dates: start: 20230201
  4. IBUPROFEN [Concomitant]
     Active Substance: IBUPROFEN
     Indication: Pain
     Dosage: AS NECESSARY
     Route: 048
     Dates: start: 20220725
  5. TIVICAY [Concomitant]
     Active Substance: DOLUTEGRAVIR SODIUM
     Indication: HIV infection
     Dosage: 50 MILLIGRAM, QD (DAILY)
     Route: 048
     Dates: start: 20220803, end: 20231018
  6. TAMSULOSIN [Concomitant]
     Active Substance: TAMSULOSIN
     Indication: Benign prostatic hyperplasia
     Dosage: 0.4 MILLIGRAM, QD (DAILY)
     Route: 048
     Dates: start: 20230814

REACTIONS (4)
  - Hypernatraemia [Not Recovered/Not Resolved]
  - Lactic acidosis [Not Recovered/Not Resolved]
  - Diabetes insipidus [Not Recovered/Not Resolved]
  - Fanconi syndrome acquired [Not Recovered/Not Resolved]

NARRATIVE: CASE EVENT DATE: 20230101
